FAERS Safety Report 13117124 (Version 4)
Quarter: 2020Q1

REPORT INFORMATION
  Report Type: Spontaneous
  Country: BY (occurrence: BY)
  Receive Date: 20170116
  Receipt Date: 20200304
  Transmission Date: 20200409
  Serious: Yes (Other)
  Sender: FDA-Public Use
  Company Number: BY-JNJFOC-20170108882

PATIENT

DRUGS (2)
  1. LINEZOLID. [Suspect]
     Active Substance: LINEZOLID
     Indication: TUBERCULOSIS
     Route: 065
  2. SIRTURO [Suspect]
     Active Substance: BEDAQUILINE FUMARATE
     Indication: TUBERCULOSIS
     Route: 065

REACTIONS (35)
  - Hyperuricaemia [Unknown]
  - Platelet count decreased [Unknown]
  - Renal disorder [Unknown]
  - Candida infection [Unknown]
  - Electrolyte imbalance [Unknown]
  - Cardiac disorder [Unknown]
  - Creatinine renal clearance decreased [Unknown]
  - Mental disorder [Unknown]
  - Dizziness [Unknown]
  - Adverse event [Unknown]
  - Electrocardiogram QT prolonged [Unknown]
  - Vomiting [Unknown]
  - Insomnia [Unknown]
  - Anaemia [Unknown]
  - Hypomagnesaemia [Unknown]
  - Abdominal pain [Unknown]
  - Pruritus [Unknown]
  - Hypoacusis [Unknown]
  - Paraesthesia [Unknown]
  - Infection [Unknown]
  - Arrhythmia [Unknown]
  - Hepatic function abnormal [Unknown]
  - Hepatobiliary disease [Unknown]
  - Metabolic disorder [Unknown]
  - Sputum culture positive [Unknown]
  - Nausea [Unknown]
  - Lymphadenopathy [Unknown]
  - Rash [Unknown]
  - Tinnitus [Unknown]
  - Headache [Unknown]
  - Infestation [Unknown]
  - Gastrointestinal disorder [Unknown]
  - Skin disorder [Unknown]
  - Inner ear disorder [Unknown]
  - Nervous system disorder [Unknown]
